FAERS Safety Report 24560890 (Version 4)
Quarter: 2025Q1

REPORT INFORMATION
  Report Type: Spontaneous
  Country: US (occurrence: US)
  Receive Date: 20241029
  Receipt Date: 20250117
  Transmission Date: 20250409
  Serious: No
  Sender: PFIZER
  Company Number: US-PFIZER INC-202400285374

PATIENT
  Age: 14 Year
  Sex: Male

DRUGS (1)
  1. GENOTROPIN [Suspect]
     Active Substance: SOMATROPIN

REACTIONS (3)
  - Poor quality device used [Unknown]
  - Device mechanical issue [Unknown]
  - Device breakage [Unknown]

NARRATIVE: CASE EVENT DATE: 20241001
